FAERS Safety Report 17263839 (Version 1)
Quarter: 2020Q1

REPORT INFORMATION
  Report Type: Report from Study
  Country: US (occurrence: US)
  Receive Date: 20200113
  Receipt Date: 20200113
  Transmission Date: 20200409
  Serious: Yes (Other)
  Sender: FDA-Public Use
  Company Number: US-ASTRAZENECA-2020SE04691

PATIENT

DRUGS (3)
  1. QUETIAPINE. [Suspect]
     Active Substance: QUETIAPINE
     Route: 048
  2. TEMAZEPAM. [Concomitant]
     Active Substance: TEMAZEPAM
  3. LORAZEPAM. [Interacting]
     Active Substance: LORAZEPAM
     Route: 065

REACTIONS (3)
  - Drug interaction [Unknown]
  - Lethargy [Unknown]
  - Aspiration [Unknown]
